FAERS Safety Report 17543336 (Version 1)
Quarter: 2020Q1

REPORT INFORMATION
  Report Type: Report from Study
  Country: None (occurrence: US)
  Receive Date: 20200316
  Receipt Date: 20200316
  Transmission Date: 20200409
  Serious: Yes (Other)
  Sender: FDA-Public Use
  Company Number: US-ABBVIE-20K-163-3313347-00

PATIENT
  Age: 30 Year
  Sex: Female

DRUGS (4)
  1. PITOCIN [Concomitant]
     Active Substance: OXYTOCIN
     Indication: PRODUCT USED FOR UNKNOWN INDICATION
  2. HUMIRA [Suspect]
     Active Substance: ADALIMUMAB
     Indication: PRODUCT USED FOR UNKNOWN INDICATION
     Route: 058
     Dates: start: 2016, end: 2018
  3. HUMIRA [Suspect]
     Active Substance: ADALIMUMAB
     Route: 058
     Dates: start: 2018
  4. MAGNESIUM [Concomitant]
     Active Substance: MAGNESIUM
     Indication: PRODUCT USED FOR UNKNOWN INDICATION

REACTIONS (8)
  - Incision site haemorrhage [Recovered/Resolved]
  - Nasopharyngitis [Not Recovered/Not Resolved]
  - Maternal exposure during pregnancy [Unknown]
  - Live birth [Unknown]
  - Episiotomy [Recovered/Resolved]
  - Ankylosing spondylitis [Recovered/Resolved]
  - Gastroenteritis viral [Not Recovered/Not Resolved]
  - Gestational hypertension [Recovered/Resolved]

NARRATIVE: CASE EVENT DATE: 2018
